FAERS Safety Report 21160066 (Version 2)
Quarter: 2022Q4

REPORT INFORMATION
  Report Type: Spontaneous
  Country: US (occurrence: US)
  Receive Date: 20220802
  Receipt Date: 20221005
  Transmission Date: 20230113
  Serious: Yes (Other)
  Sender: FDA-Public Use
  Company Number: US-BIOGEN-2022BI01143040

PATIENT
  Sex: Female

DRUGS (1)
  1. TYSABRI [Suspect]
     Active Substance: NATALIZUMAB
     Indication: Multiple sclerosis
     Route: 050
     Dates: start: 20211227

REACTIONS (6)
  - Seizure [Unknown]
  - Cerebrovascular accident [Unknown]
  - Foaming at mouth [Unknown]
  - Facial paralysis [Unknown]
  - Gait disturbance [Unknown]
  - Tremor [Unknown]
